FAERS Safety Report 6058376-8 (Version None)
Quarter: 2009Q1

REPORT INFORMATION
  Report Type: 
  Country: None (occurrence: None)
  Receive Date: 20090127
  Receipt Date: 20090115
  Transmission Date: 20090719
  Serious: Yes (Disabling, Other)
  Sender: FDA-Public Use
  Company Number: GB-2008-1155

PATIENT
  Sex: Female
  Weight: 53 kg

DRUGS (2)
  1. NAVELBINE [Suspect]
     Indication: BREAST CANCER
     Dosage: 50 MG IV
     Route: 042
     Dates: start: 20080708, end: 20080708
  2. AVASTIN [Suspect]
     Indication: BREAST CANCER
     Dosage: 800 MG IV
     Route: 042
     Dates: start: 20080708, end: 20080708

REACTIONS (2)
  - CHEMICAL BURN OF SKIN [None]
  - INFUSION SITE PHLEBITIS [None]
